FAERS Safety Report 23850428 (Version 1)
Quarter: 2024Q2

REPORT INFORMATION
  Report Type: Other
  Country: US (occurrence: None)
  Receive Date: 20240513
  Receipt Date: 20240513
  Transmission Date: 20240716
  Serious: Yes (Hospitalization, Other)
  Sender: FDA-Public Use
  Company Number: US-ROCHE-3556287

PATIENT
  Age: 71 Year
  Sex: Male
  Weight: 90.8 kg

DRUGS (2)
  1. OCREVUS [Suspect]
     Active Substance: OCRELIZUMAB
     Indication: Relapsing multiple sclerosis
     Route: 042
     Dates: start: 20210215
  2. OCREVUS [Suspect]
     Active Substance: OCRELIZUMAB
     Route: 042
     Dates: start: 20230217, end: 20240217

REACTIONS (7)
  - COVID-19 [Recovered/Resolved]
  - Paralysis [Recovered/Resolved]
  - Tremor [Not Recovered/Not Resolved]
  - Urethral intrinsic sphincter deficiency [Unknown]
  - Kidney enlargement [Unknown]
  - Arthritis [Not Recovered/Not Resolved]
  - Bladder spasm [Unknown]

NARRATIVE: CASE EVENT DATE: 20221222
